FAERS Safety Report 5678269-5 (Version None)
Quarter: 2008Q1

REPORT INFORMATION
  Report Type: 
  Country: None (occurrence: None)
  Receive Date: 20080319
  Receipt Date: 20080305
  Transmission Date: 20080703
  Serious: No
  Sender: FDA-Public Use
  Company Number: 2008-173291-NL

PATIENT
  Age: 39 Year
  Sex: Female

DRUGS (3)
  1. MIRTAZAPINE [Suspect]
     Indication: DEPRESSION
     Dosage: 30 MG
  2. IPRONIAZID [Suspect]
     Indication: DEPRESSION
     Dosage: 150 MG
  3. REBOXETINE [Suspect]
     Indication: DEPRESSION
     Dosage: 4 MG BID

REACTIONS (1)
  - HEPATITIS CHOLESTATIC [None]
